FAERS Safety Report 10228687 (Version 1)
Quarter: 2014Q2

REPORT INFORMATION
  Report Type: Spontaneous
  Country: KR (occurrence: KR)
  Receive Date: 20140610
  Receipt Date: 20140610
  Transmission Date: 20141212
  Serious: Yes (Other)
  Sender: FDA-Public Use
  Company Number: KR-SPECTRUM PHARMACEUTICALS, INC.-14-F-KR-00095

PATIENT
  Age: 59 Year
  Sex: Male

DRUGS (3)
  1. FLUOROURACIL [Suspect]
     Route: 042
  2. LEUCOVORIN                         /00566701/ [Suspect]
     Indication: COLON CANCER METASTATIC
     Route: 042
  3. OXALIPLATIN [Suspect]
     Indication: COLON CANCER METASTATIC
     Route: 042

REACTIONS (1)
  - Tumour lysis syndrome [Recovered/Resolved]
